FAERS Safety Report 25887000 (Version 1)
Quarter: 2025Q4

REPORT INFORMATION
  Report Type: Spontaneous
  Country: US (occurrence: None)
  Receive Date: 20251003
  Receipt Date: 20251003
  Transmission Date: 20260118
  Serious: Yes (Disabling, Other)
  Sender: FDA-CTU
  Company Number: None

PATIENT
  Age: 40 Year
  Sex: Female
  Weight: 63 kg

DRUGS (7)
  1. LEXAPRO [Suspect]
     Active Substance: ESCITALOPRAM OXALATE
     Indication: Generalised anxiety disorder
     Dosage: FREQUENCY : AT BEDTIME;?
     Route: 048
  2. LEXAPRO [Suspect]
     Active Substance: ESCITALOPRAM OXALATE
     Indication: Depression
  3. ATIVAN [Suspect]
     Active Substance: LORAZEPAM
     Indication: Generalised anxiety disorder
     Dosage: FREQUENCY : AT BEDTIME;?
     Route: 048
  4. Allegra Pepcid [Concomitant]
  5. VITAMIN D3 [Concomitant]
     Active Substance: CHOLECALCIFEROL
  6. Quercitin [Concomitant]
  7. Lioisinak Vitamin C [Concomitant]

REACTIONS (21)
  - Stress [None]
  - Grief reaction [None]
  - Abortion spontaneous [None]
  - Flushing [None]
  - Skin burning sensation [None]
  - Therapy interrupted [None]
  - Urticaria [None]
  - Drug eruption [None]
  - Paraesthesia [None]
  - Petechiae [None]
  - Pruritus [None]
  - Biopsy skin abnormal [None]
  - Iron deficiency anaemia [None]
  - Withdrawal syndrome [None]
  - Menstrual discomfort [None]
  - Progesterone decreased [None]
  - Blood oestrogen increased [None]
  - Superficial inflammatory dermatosis [None]
  - Arthropod scratch [None]
  - Parakeratosis [None]
  - Eczema [None]
